FAERS Safety Report 11918746 (Version 1)
Quarter: 2016Q1

REPORT INFORMATION
  Report Type: Spontaneous
  Country: US (occurrence: US)
  Receive Date: 20160115
  Receipt Date: 20160115
  Transmission Date: 20160526
  Serious: No
  Sender: FDA-Public Use
  Company Number: US-JNJFOC-20160101611

PATIENT
  Age: 53 Year
  Sex: Female
  Weight: 65.77 kg

DRUGS (6)
  1. COQ  10 [Concomitant]
     Active Substance: UBIDECARENONE
     Indication: MIGRAINE
     Dosage: SINCE 5 YEARS
     Route: 065
  2. VITAMIN B2 [Concomitant]
     Active Substance: RIBOFLAVIN
     Indication: MIGRAINE
     Dosage: SINCE 5 YEARS
     Route: 065
  3. VITAMIN D [Concomitant]
     Active Substance: CHOLECALCIFEROL
     Indication: VITAMIN D DEFICIENCY
     Dosage: SINCE 4-5 YEARS
     Route: 065
  4. LEVSIN [Concomitant]
     Active Substance: HYOSCYAMINE SULFATE
     Indication: IRRITABLE BOWEL SYNDROME
     Dosage: SINCE 18 YEARS
     Route: 065
     Dates: start: 199801
  5. IMODIUM MULTI-SYMPTOM RELIEF [Suspect]
     Active Substance: DIMETHICONE\LOPERAMIDE HYDROCHLORIDE
     Route: 048
  6. IMODIUM MULTI-SYMPTOM RELIEF [Suspect]
     Active Substance: DIMETHICONE\LOPERAMIDE HYDROCHLORIDE
     Indication: IRRITABLE BOWEL SYNDROME
     Dosage: 2 CAPLETS AT FIRST AND THEN 1 CAPLET LATER AS NEEDED
     Route: 048
     Dates: end: 20160102

REACTIONS (5)
  - Dysgeusia [Recovered/Resolved]
  - Product use issue [Unknown]
  - Dysphagia [Recovered/Resolved]
  - Product size issue [Unknown]
  - Off label use [Unknown]
